FAERS Safety Report 17422422 (Version 2)
Quarter: 2020Q1

REPORT INFORMATION
  Report Type: Report from Study
  Country: None (occurrence: US)
  Receive Date: 20200215
  Receipt Date: 20200302
  Transmission Date: 20200409
  Serious: Yes (Hospitalization, Other)
  Sender: FDA-Public Use
  Company Number: US-ABBVIE-20K-163-3273125-00

PATIENT
  Age: 56 Year
  Sex: Male
  Weight: 172.97 kg

DRUGS (1)
  1. SKYRIZI [Suspect]
     Active Substance: RISANKIZUMAB-RZAA
     Indication: PSORIASIS
     Route: 058
     Dates: start: 201906

REACTIONS (3)
  - Pericardial effusion [Recovering/Resolving]
  - Arterial occlusive disease [Recovering/Resolving]
  - Post procedural swelling [Recovering/Resolving]

NARRATIVE: CASE EVENT DATE: 201911
